FAERS Safety Report 5453010-X (Version None)
Quarter: 2007Q3

REPORT INFORMATION
  Report Type: 
  Country: None (occurrence: None)
  Receive Date: 20070914
  Receipt Date: 20070830
  Transmission Date: 20080115
  Serious: Yes (Other)
  Sender: FDA-Public Use
  Company Number: TR-BOEHRINGER INGELHEIM PHARMACEUTICALS, INC.-2007-DE-05494RM

PATIENT
  Age: 49 Year
  Sex: Male

DRUGS (1)
  1. MELOXICAM [Suspect]
     Indication: PSORIATIC ARTHROPATHY
     Route: 065

REACTIONS (1)
  - PSORIASIS [None]
